FAERS Safety Report 24199389 (Version 2)
Quarter: 2024Q4

REPORT INFORMATION
  Report Type: Spontaneous
  Country: JP (occurrence: JP)
  Receive Date: 20240812
  Receipt Date: 20241014
  Transmission Date: 20250114
  Serious: Yes (Hospitalization)
  Sender: CSL BEHRING
  Company Number: JP-BEH-2024176952

PATIENT
  Age: 80 Year
  Sex: Male
  Weight: 50 kg

DRUGS (5)
  1. FIBROGAMMIN P [Suspect]
     Active Substance: FACTOR XIII CONCENTRATE (HUMAN)
     Indication: Suture rupture
     Dosage: 6 VIALS PER A DAY
     Route: 042
     Dates: start: 2023
  2. FIBROGAMMIN P [Suspect]
     Active Substance: FACTOR XIII CONCENTRATE (HUMAN)
     Indication: Fistula
     Dosage: 6 VIALS, QD
     Route: 042
     Dates: start: 20240805, end: 20240809
  3. FIBROGAMMIN P [Suspect]
     Active Substance: FACTOR XIII CONCENTRATE (HUMAN)
     Indication: Abnormal clotting factor
     Dosage: 6 VIALS, QD
     Route: 042
     Dates: start: 20240805, end: 20240809
  4. FIBROGAMMIN P [Suspect]
     Active Substance: FACTOR XIII CONCENTRATE (HUMAN)
     Indication: Coagulation factor XIII level decreased
  5. ASPIRIN [Concomitant]
     Active Substance: ASPIRIN
     Route: 048

REACTIONS (3)
  - Coagulopathy [Recovering/Resolving]
  - Platelet count decreased [Recovering/Resolving]
  - Shunt malfunction [Recovering/Resolving]

NARRATIVE: CASE EVENT DATE: 20240727
